FAERS Safety Report 5015185-6 (Version None)
Quarter: 2006Q2

REPORT INFORMATION
  Report Type: 
  Country: None (occurrence: None)
  Receive Date: 20060425
  Receipt Date: 20060216
  Transmission Date: 20061013
  Serious: No
  Sender: FDA-Public Use
  Company Number: 222219

PATIENT
  Age: 14 Year
  Sex: Female
  Weight: 45.8 kg

DRUGS (5)
  1. XOLAIR [Suspect]
     Indication: DRUG USE FOR UNKNOWN INDICATION
     Dosage: 300 MG, Q4W, SUBCUTANEOUS
     Route: 058
     Dates: start: 20051118
  2. QVAR 40 [Concomitant]
  3. ASTELIN [Concomitant]
  4. XOPENEX [Concomitant]
  5. PROVENTIL (ALBUTEROL/ALBUTEROL SULFATE) [Concomitant]

REACTIONS (1)
  - ALOPECIA [None]
